FAERS Safety Report 4977146-2 (Version None)
Quarter: 2006Q2

REPORT INFORMATION
  Report Type: 
  Country: None (occurrence: None)
  Receive Date: 20060413
  Receipt Date: 20060329
  Transmission Date: 20061013
  Serious: Yes (Hospitalization)
  Sender: FDA-Public Use
  Company Number: 2006MP000485

PATIENT
  Age: 58 Year
  Sex: Male
  Weight: 88.6 kg

DRUGS (5)
  1. GLIADEL [Suspect]
     Indication: GLIOBLASTOMA MULTIFORME
     Dosage: 61.6 MG;X1;ICER
     Dates: start: 20060316, end: 20060316
  2. 06-BENZYLGUANINE (06BG) [Suspect]
     Indication: GLIOBLASTOMA MULTIFORME
     Dosage: 30 MG/M**2;QDX5;IV
     Route: 042
     Dates: start: 20060316, end: 20060321
  3. DILANTIN [Suspect]
     Indication: CONVULSION
     Dosage: 400 MG;QD;PO
     Route: 048
  4. DECADRON [Concomitant]
  5. MULTIVITAMIN [Concomitant]

REACTIONS (7)
  - ANXIETY [None]
  - ASTHENIA [None]
  - CONVULSION [None]
  - DRUG INTERACTION [None]
  - DRUG LEVEL DECREASED [None]
  - POSTICTAL STATE [None]
  - VISUAL ACUITY REDUCED [None]
